FAERS Safety Report 9110701 (Version 1)
Quarter: 2013Q1

REPORT INFORMATION
  Report Type: Spontaneous
  Country: US (occurrence: US)
  Receive Date: 20130219
  Receipt Date: 20130219
  Transmission Date: 20140127
  Serious: No
  Sender: FDA-Public Use
  Company Number: US-BRISTOL-MYERS SQUIBB COMPANY-17201773

PATIENT
  Age: 59 Year
  Sex: Female
  Weight: 145 kg

DRUGS (13)
  1. ABATACEPT SUBQ INJECTION 125MG/ML [Suspect]
     Dosage: 4 PACKS
     Route: 058
  2. SULAR [Concomitant]
  3. ASPIRIN [Concomitant]
  4. MULTIVITAMIN [Concomitant]
     Dosage: CAP
  5. METHOTREXATE [Concomitant]
     Dosage: 1DF:100/4ML INJ
  6. PREDNISONE [Concomitant]
  7. ALDACTONE [Concomitant]
  8. PREMPRO [Concomitant]
     Dosage: 1DF: 625.2.5
  9. PRAVACHOL [Concomitant]
  10. MORPHINE SULFATE [Concomitant]
  11. HCTZ + TRIAMTERENE [Concomitant]
     Dosage: 1DF:25-50MG
  12. VITAMIN C [Concomitant]
  13. CALCIUM [Concomitant]
     Dosage: 1DF:1200 CHW

REACTIONS (2)
  - Arthralgia [Unknown]
  - Pain in extremity [Unknown]
